FAERS Safety Report 14715307 (Version 1)
Quarter: 2018Q2

REPORT INFORMATION
  Report Type: Spontaneous
  Country: GB (occurrence: GB)
  Receive Date: 20180404
  Receipt Date: 20180404
  Transmission Date: 20180711
  Serious: Yes (Hospitalization, Disabling)
  Sender: FDA-Public Use
  Company Number: GB-JNJFOC-20180401863

PATIENT
  Age: 79 Year
  Sex: Female

DRUGS (4)
  1. FELODIPINE. [Concomitant]
     Active Substance: FELODIPINE
     Route: 065
  2. BISOPROLOL [Concomitant]
     Active Substance: BISOPROLOL
     Route: 065
  3. XARELTO [Suspect]
     Active Substance: RIVAROXABAN
     Indication: ATRIAL FIBRILLATION
     Route: 048
  4. ATORVASTATIN [Concomitant]
     Active Substance: ATORVASTATIN
     Route: 065

REACTIONS (4)
  - Confusional state [Unknown]
  - Haemorrhagic stroke [Not Recovered/Not Resolved]
  - Pneumonia [Unknown]
  - Seizure [Unknown]

NARRATIVE: CASE EVENT DATE: 20180221
